FAERS Safety Report 7298201-0 (Version None)
Quarter: 2011Q1

REPORT INFORMATION
  Report Type: 
  Country: None (occurrence: None)
  Receive Date: 20110217
  Receipt Date: 20110210
  Transmission Date: 20110831
  Serious: Yes (Death, Hospitalization)
  Sender: FDA-Public Use
  Company Number: JP-ABBOTT-10P-087-0666712-00

PATIENT
  Sex: Female
  Weight: 37.5 kg

DRUGS (11)
  1. PREDNISOLONE [Concomitant]
     Indication: RHEUMATOID ARTHRITIS
     Route: 048
  2. HUMIRA [Suspect]
     Indication: RHEUMATOID ARTHRITIS
     Route: 058
     Dates: start: 20090619, end: 20100813
  3. PRAVASTATIN SODIUM [Concomitant]
     Indication: HYPERLIPIDAEMIA
     Route: 048
  4. TACROLIMUS [Concomitant]
     Indication: RHEUMATOID ARTHRITIS
     Route: 048
  5. TEPRENONE [Concomitant]
     Indication: GASTRITIS
     Route: 048
  6. METHOTREXATE [Concomitant]
     Indication: PRODUCT USED FOR UNKNOWN INDICATION
  7. LOXOPROFEN SODIUM HYDRATE [Concomitant]
     Indication: RHEUMATOID ARTHRITIS
     Route: 048
  8. SODIUM RISEDRONATE HYDRATE [Concomitant]
     Indication: PROPHYLAXIS
     Route: 048
  9. LANSOPRAZOLE [Concomitant]
     Indication: REFLUX OESOPHAGITIS
     Route: 048
  10. SODIUM RISEDRONATE HYDRATE [Concomitant]
     Indication: FRACTURE
  11. INSULIN LISPRO [Concomitant]
     Indication: DIABETES MELLITUS
     Dosage: EACH IN THE AM AND AFTERNOON, 8 IN PM
     Route: 050

REACTIONS (4)
  - RENAL IMPAIRMENT [None]
  - PULMONARY EMBOLISM [None]
  - INTERSTITIAL LUNG DISEASE [None]
  - CARDIO-RESPIRATORY ARREST [None]
